FAERS Safety Report 12389336 (Version 1)
Quarter: 2016Q2

REPORT INFORMATION
  Report Type: Report from Study
  Country: JP (occurrence: JP)
  Receive Date: 20160520
  Receipt Date: 20160520
  Transmission Date: 20160815
  Serious: Yes (Death)
  Sender: FDA-Public Use
  Company Number: JP-SA-2016SA097276

PATIENT
  Age: 71 Year
  Sex: Female
  Weight: 55.3 kg

DRUGS (4)
  1. GASTER [Concomitant]
     Active Substance: FAMOTIDINE
     Indication: PROPHYLAXIS AGAINST GASTROINTESTINAL ULCER
     Dates: start: 20100202, end: 20100318
  2. NEORAL [Concomitant]
     Active Substance: CYCLOSPORINE
     Dates: start: 20091102, end: 20100204
  3. SOL-MELCORT [Concomitant]
     Active Substance: METHYLPREDNISOLONE SODIUM SUCCINATE
     Dates: start: 20100202, end: 20100203
  4. THYMOGLOBULINE [Suspect]
     Active Substance: LAPINE T-LYMPHOCYTE IMMUNE GLOBULIN
     Indication: APLASTIC ANAEMIA
     Dosage: INJECTION 25 MG
     Route: 042
     Dates: start: 20100202, end: 20100204

REACTIONS (3)
  - Fall [Unknown]
  - Subarachnoid haemorrhage [Fatal]
  - Infection [Recovered/Resolved]

NARRATIVE: CASE EVENT DATE: 20100203
